FAERS Safety Report 24151771 (Version 1)
Quarter: 2024Q3

REPORT INFORMATION
  Report Type: Spontaneous
  Country: US (occurrence: None)
  Receive Date: 20240729
  Receipt Date: 20240729
  Transmission Date: 20241016
  Serious: No
  Sender: Public
  Company Number: None

PATIENT
  Age: 52 Year
  Sex: Female
  Weight: 126 kg

DRUGS (6)
  1. XERMELO [Suspect]
     Active Substance: TELOTRISTAT ETHYL
     Indication: Carcinoid syndrome
     Dosage: 84 TABLETS 3 TIMES A DAY ORAL);? ?
     Route: 048
  2. XERMELO [Suspect]
     Active Substance: TELOTRISTAT ETHYL
     Indication: Diarrhoea
  3. XERMELO [Suspect]
     Active Substance: TELOTRISTAT ETHYL
     Indication: Abdominal pain upper
  4. ZOMETA [Concomitant]
     Active Substance: ZOLEDRONIC ACID
  5. OCTREOTIDE [Concomitant]
     Active Substance: OCTREOTIDE\OCTREOTIDE ACETATE
  6. CALCIUM [Concomitant]
     Active Substance: CALCIUM

REACTIONS (5)
  - Product temperature excursion issue [None]
  - Product storage error [None]
  - Manufacturing product shipping issue [None]
  - Poor quality product administered [None]
  - Drug ineffective [None]

NARRATIVE: CASE EVENT DATE: 20240708
